FAERS Safety Report 9324366 (Version 1)
Quarter: 2013Q2

REPORT INFORMATION
  Report Type: Spontaneous
  Country: DE (occurrence: DE)
  Receive Date: 20130603
  Receipt Date: 20130603
  Transmission Date: 20140414
  Serious: Yes (Other)
  Sender: FDA-Public Use
  Company Number: DE-ELI_LILLY_AND_COMPANY-DE201305006111

PATIENT
  Age: 55 Year
  Sex: Female
  Weight: 60 kg

DRUGS (5)
  1. CYMBALTA [Suspect]
     Dosage: 90 MG, UNK
     Route: 048
     Dates: start: 20130520, end: 20130520
  2. LAMOTRIGIN [Concomitant]
     Dosage: 100 MG, UNK
  3. L-THYROXINE [Concomitant]
     Dosage: 75 UG, UNK
  4. ENALAPRIL [Concomitant]
     Dosage: 20 MG, UNK
  5. CLOZAPIN [Concomitant]
     Dosage: 100 MG, UNK

REACTIONS (2)
  - Blood pressure systolic decreased [Unknown]
  - Wrong drug administered [Unknown]
